FAERS Safety Report 25183206 (Version 1)
Quarter: 2025Q2

REPORT INFORMATION
  Report Type: Report from Study
  Country: CN (occurrence: CN)
  Receive Date: 20250410
  Receipt Date: 20250410
  Transmission Date: 20250716
  Serious: Yes (Other)
  Sender: SANOFI AVENTIS
  Company Number: CN-SA-2025SA098175

PATIENT
  Age: 49 Year
  Sex: Male

DRUGS (4)
  1. BELUMOSUDIL MESYLATE [Suspect]
     Active Substance: BELUMOSUDIL MESYLATE
     Indication: Chronic graft versus host disease
     Dosage: 200 MG, QD
     Route: 048
     Dates: start: 20250113
  2. TACROLIMUS [Concomitant]
     Active Substance: TACROLIMUS
  3. CYCLOSPORINE [Concomitant]
     Active Substance: CYCLOSPORINE
  4. SODIUM HYALURONATE [Concomitant]
     Active Substance: HYALURONATE SODIUM

REACTIONS (5)
  - Chronic graft versus host disease in eye [Not Recovered/Not Resolved]
  - Condition aggravated [Not Recovered/Not Resolved]
  - Dry eye [Not Recovered/Not Resolved]
  - Vision blurred [Not Recovered/Not Resolved]
  - Drug ineffective [Unknown]

NARRATIVE: CASE EVENT DATE: 20250401
